FAERS Safety Report 22154738 (Version 1)
Quarter: 2023Q1

REPORT INFORMATION
  Report Type: Spontaneous
  Country: CA (occurrence: CA)
  Receive Date: 20230330
  Receipt Date: 20230330
  Transmission Date: 20230417
  Serious: Yes (Other)
  Sender: FDA-Public Use
  Company Number: CA-002147023-NVSC2023CA067943

PATIENT
  Age: 34 Year
  Sex: Female

DRUGS (3)
  1. METHOTREXATE [Suspect]
     Active Substance: METHOTREXATE
     Indication: Product used for unknown indication
     Dosage: 25 MG, QW
     Route: 058
  2. BACTRIM [Concomitant]
     Active Substance: SULFAMETHOXAZOLE\TRIMETHOPRIM
     Indication: Product used for unknown indication
     Dosage: 1 DOSAGE FORM
     Route: 065
  3. PREDNISONE [Concomitant]
     Active Substance: PREDNISONE
     Indication: Product used for unknown indication
     Dosage: 7.5 MG
     Route: 065

REACTIONS (13)
  - Arrhythmia [Unknown]
  - Arthralgia [Unknown]
  - Bronchitis [Unknown]
  - Dyspnoea [Unknown]
  - Hepatic mass [Unknown]
  - Loss of consciousness [Unknown]
  - Lung infiltration [Unknown]
  - Metabolic disorder [Unknown]
  - Myalgia [Unknown]
  - Nasal congestion [Unknown]
  - Nodule [Unknown]
  - Off label use [Unknown]
  - Treatment failure [Unknown]
